FAERS Safety Report 21312689 (Version 1)
Quarter: 2022Q3

REPORT INFORMATION
  Report Type: Spontaneous
  Country: US (occurrence: None)
  Receive Date: 20220908
  Receipt Date: 20220908
  Transmission Date: 20221027
  Serious: No
  Sender: FDA-Public Use
  Company Number: None

PATIENT
  Age: 62 Year
  Sex: Female
  Weight: 56.25 kg

DRUGS (8)
  1. SYNTHROID [Suspect]
     Active Substance: LEVOTHYROXINE SODIUM
     Indication: Thyroid hormone replacement therapy
     Dosage: OTHER STRENGTH : MCG;?OTHER QUANTITY : 1 TABLET(S);?
     Route: 048
     Dates: start: 20220406
  2. TYLENOL [Concomitant]
     Active Substance: ACETAMINOPHEN
  3. IBUPROFEN [Concomitant]
     Active Substance: IBUPROFEN
  4. DAILY ONE A DAY 50+ WOMEN^S VITAMIN [Concomitant]
  5. CALCIUM [Concomitant]
  6. MAGNESIUM [Concomitant]
     Active Substance: MAGNESIUM
  7. ZINC [Concomitant]
     Active Substance: ZINC
  8. BENADRYL [Concomitant]

REACTIONS (2)
  - Manufacturing materials issue [None]
  - Therapeutic product effect increased [None]

NARRATIVE: CASE EVENT DATE: 20220406
